FAERS Safety Report 5524296-8 (Version None)
Quarter: 2007Q4

REPORT INFORMATION
  Report Type: 
  Country: None (occurrence: None)
  Receive Date: 20071121
  Receipt Date: 20071109
  Transmission Date: 20080405
  Serious: Yes (Hospitalization, Other)
  Sender: FDA-Public Use
  Company Number: US-PFIZER INC-2007095351

PATIENT
  Sex: Male
  Weight: 136.1 kg

DRUGS (5)
  1. LYRICA [Suspect]
     Indication: DIABETIC NEUROPATHY
     Dates: start: 20060519, end: 20060719
  2. METOPROLOL [Concomitant]
  3. CARDIOVASCULAR SYSTEM DRUGS [Concomitant]
  4. ANTI-DIABETICS [Concomitant]
  5. ALL OTHER THERAPEUTIC PRODUCTS [Concomitant]

REACTIONS (13)
  - ABASIA [None]
  - COMA [None]
  - CONFUSIONAL STATE [None]
  - DECUBITUS ULCER [None]
  - DISORIENTATION [None]
  - DRUG INEFFECTIVE [None]
  - FATIGUE [None]
  - HALLUCINATION [None]
  - HYPOAESTHESIA [None]
  - PAIN [None]
  - RENAL FAILURE ACUTE [None]
  - SOMNOLENCE [None]
  - WEIGHT DECREASED [None]
